FAERS Safety Report 17925581 (Version 1)
Quarter: 2020Q2

REPORT INFORMATION
  Report Type: Report from Study
  Country: None (occurrence: US)
  Receive Date: 20200623
  Receipt Date: 20200623
  Transmission Date: 20200714
  Serious: Yes (Hospitalization)
  Sender: FDA-Public Use
  Company Number: US-ABBVIE-20K-163-3316718-00

PATIENT
  Age: 76 Year
  Sex: Female
  Weight: 70.37 kg

DRUGS (1)
  1. VENCLEXTA [Suspect]
     Active Substance: VENETOCLAX
     Indication: B-CELL LYMPHOMA STAGE I
     Route: 058

REACTIONS (5)
  - Hypertension [Not Recovered/Not Resolved]
  - Atrial fibrillation [Recovering/Resolving]
  - Off label use [Unknown]
  - Cough [Not Recovered/Not Resolved]
  - Dizziness [Recovering/Resolving]

NARRATIVE: CASE EVENT DATE: 20200204
